FAERS Safety Report 6600057-3 (Version None)
Quarter: 2010Q1

REPORT INFORMATION
  Report Type: 
  Country: None (occurrence: None)
  Receive Date: 20100217
  Receipt Date: 20100203
  Transmission Date: 20100710
  Serious: Yes (Death, Hospitalization)
  Sender: FDA-Public Use
  Company Number: 2010AC000113

PATIENT
  Age: 66 Year
  Sex: Male

DRUGS (29)
  1. DIGOXIN [Suspect]
     Indication: ARRHYTHMIA
     Dosage: 0.25 MG; QD; PO
     Route: 048
     Dates: end: 20080401
  2. SPIRONOLACTONE [Concomitant]
  3. FUROSEMIDE [Concomitant]
  4. BUMETANIDE [Concomitant]
  5. POTASSIUM [Concomitant]
  6. METOLAZONE [Concomitant]
  7. LEVOTHYROXINE [Concomitant]
  8. COUMADIN [Concomitant]
  9. PRIMIDONE [Concomitant]
  10. IRON [Concomitant]
  11. LANTUS [Concomitant]
  12. NOVOLOG [Concomitant]
  13. LOVENOX [Concomitant]
  14. RIFAXIMIN [Concomitant]
  15. VANCOMYCIN [Concomitant]
  16. CEFOTAXIME [Concomitant]
  17. VITAMIN C [Concomitant]
  18. DIOVAN [Concomitant]
  19. LOPID [Concomitant]
  20. GEMFIBROZIL [Concomitant]
  21. SYNTHROID [Concomitant]
  22. K-DUR [Concomitant]
  23. ZYMAR [Concomitant]
  24. LYRICA [Concomitant]
  25. ENULOSE [Concomitant]
  26. POLYBASE [Concomitant]
  27. *OXYGEN [Concomitant]
  28. MELOXICAM [Concomitant]
  29. COMBIVENT [Concomitant]

REACTIONS (42)
  - ABDOMINAL DISTENSION [None]
  - ABDOMINAL PAIN [None]
  - ASCITES [None]
  - ASTHENIA [None]
  - ATAXIA [None]
  - ATRIAL FIBRILLATION [None]
  - BACK PAIN [None]
  - BALANCE DISORDER [None]
  - BREATH SOUNDS ABNORMAL [None]
  - CARDIAC FAILURE CONGESTIVE [None]
  - CHEST PAIN [None]
  - CONDITION AGGRAVATED [None]
  - DIZZINESS [None]
  - DYSPNOEA [None]
  - DYSURIA [None]
  - EXCORIATION [None]
  - FLUID OVERLOAD [None]
  - GAIT DISTURBANCE [None]
  - HEPATIC FAILURE [None]
  - HEPATORENAL SYNDROME [None]
  - HYPERKALAEMIA [None]
  - HYPOAESTHESIA [None]
  - INSOMNIA [None]
  - LETHARGY [None]
  - LEUKOCYTOSIS [None]
  - MUSCLE SPASMS [None]
  - NECK PAIN [None]
  - NO THERAPEUTIC RESPONSE [None]
  - NOCTURIA [None]
  - OEDEMA PERIPHERAL [None]
  - PAIN IN EXTREMITY [None]
  - PENILE OEDEMA [None]
  - PERITONITIS [None]
  - PRURITUS [None]
  - PYREXIA [None]
  - RASH [None]
  - RENAL FAILURE ACUTE [None]
  - SCROTAL OEDEMA [None]
  - TREMOR [None]
  - URINARY HESITATION [None]
  - WEIGHT DECREASED [None]
  - WEIGHT INCREASED [None]
